FAERS Safety Report 8730189 (Version 2)
Quarter: 2012Q4

REPORT INFORMATION
  Report Type: 
  Country: JP (occurrence: JP)
  Receive Date: 20120817
  Receipt Date: 20120904
  Transmission Date: 20130627
  Serious: No
  Sender: FDA-Public Use
  Company Number: JP-UCBSA-063702

PATIENT

DRUGS (2)
  1. E KEPPRA [Suspect]
     Route: 048
  2. VALPROIC ACID [Suspect]
     Route: 048

REACTIONS (1)
  - White blood cell count decreased [Recovered/Resolved]
